FAERS Safety Report 25539729 (Version 2)
Quarter: 2025Q3

REPORT INFORMATION
  Report Type: Spontaneous
  Country: EU (occurrence: EU)
  Receive Date: 20250710
  Receipt Date: 20250920
  Transmission Date: 20251020
  Serious: Yes (Other)
  Sender: NOVARTIS
  Company Number: EU-002147023-NVSC2025DE107856

PATIENT
  Age: 16 Year
  Sex: Male

DRUGS (10)
  1. SECUKINUMAB [Suspect]
     Active Substance: SECUKINUMAB
     Indication: Psoriasis
     Route: 058
     Dates: start: 202211, end: 202310
  2. SECUKINUMAB [Suspect]
     Active Substance: SECUKINUMAB
     Dosage: 300 MG, Q4W (DOSE INCREASED)
     Route: 058
     Dates: start: 202211, end: 202310
  3. SULFASALAZINE [Concomitant]
     Active Substance: SULFASALAZINE
     Indication: Chronic recurrent multifocal osteomyelitis
     Route: 065
     Dates: end: 201903
  4. SULFASALAZINE [Concomitant]
     Active Substance: SULFASALAZINE
     Indication: Acne conglobata
  5. DEUCRAVACITINIB [Concomitant]
     Active Substance: DEUCRAVACITINIB
     Indication: Chronic recurrent multifocal osteomyelitis
     Route: 065
     Dates: start: 202310
  6. NAPROXEN [Concomitant]
     Active Substance: NAPROXEN
     Indication: Back pain
     Route: 065
  7. METAMIZOL [Concomitant]
     Active Substance: METAMIZOLE SODIUM
     Indication: Back pain
     Route: 065
  8. ISOTRETINOIN [Concomitant]
     Active Substance: ISOTRETINOIN
     Indication: Acne conglobata
     Dosage: 30 MG, QD (ACCORDING TO 0.5 MG/KG BODY WEIGHT)
     Route: 048
  9. ADALIMUMAB [Concomitant]
     Active Substance: ADALIMUMAB
     Indication: Product used for unknown indication
     Dosage: 40 MG, BIW
     Route: 058
     Dates: end: 202205
  10. ACITRETIN [Concomitant]
     Active Substance: ACITRETIN
     Indication: Paradoxical psoriasis
     Route: 065
     Dates: start: 202209

REACTIONS (3)
  - Psoriasis [Not Recovered/Not Resolved]
  - Abscess limb [Unknown]
  - Localised infection [Unknown]
